FAERS Safety Report 6558717-9 (Version None)
Quarter: 2010Q1

REPORT INFORMATION
  Report Type: 
  Country: None (occurrence: None)
  Receive Date: 20100129
  Receipt Date: 20100121
  Transmission Date: 20100710
  Serious: Yes (Other)
  Sender: FDA-Public Use
  Company Number: US-PFIZER INC-2010010286

PATIENT
  Sex: Male
  Weight: 87.98 kg

DRUGS (13)
  1. LIPITOR [Suspect]
     Indication: BLOOD CHOLESTEROL
     Dosage: 80 MG, 1X/DAY
     Route: 048
  2. CHANTIX [Suspect]
  3. SIMVASTATIN [Suspect]
  4. LISINOPRIL [Concomitant]
     Indication: HYPERTENSION
     Dosage: 10 MG, 1X/DAY
  5. BACLOFEN [Concomitant]
     Indication: PAIN
     Dosage: 10 MG, AS NEEDED
  6. ATENOLOL [Concomitant]
     Indication: HYPERTENSION
     Dosage: 25 MG, 1X/DAY
  7. HYDROCODONE [Concomitant]
     Indication: PAIN
     Dosage: 5 MG, 1X/DAY
  8. VITAMIN E [Concomitant]
     Dosage: UNK
  9. VITAMIN C [Concomitant]
     Dosage: UNK
  10. VICODIN [Concomitant]
     Indication: SLEEP DISORDER
     Dosage: UNK
  11. VICODIN [Concomitant]
     Indication: PAIN
  12. ACETYLSALICYLIC ACID [Concomitant]
     Dosage: 250 MG, UNK
  13. CHONDROITIN/GLUCOSAMINE [Concomitant]
     Dosage: UNK

REACTIONS (4)
  - MUSCLE SPASMS [None]
  - MYALGIA [None]
  - SCIATICA [None]
  - WEIGHT INCREASED [None]
